FAERS Safety Report 6172185-0 (Version None)
Quarter: 2009Q2

REPORT INFORMATION
  Report Type: 
  Country: None (occurrence: None)
  Receive Date: 20090429
  Receipt Date: 20090122
  Transmission Date: 20091009
  Serious: No
  Sender: FDA-Public Use
  Company Number: A0749619A

PATIENT
  Age: 38 Year
  Sex: Female
  Weight: 73.6 kg

DRUGS (2)
  1. ZOFRAN [Suspect]
     Indication: NAUSEA
     Dosage: 4MG TWICE PER DAY
     Route: 048
     Dates: start: 20080501, end: 20081101
  2. PHENERGAN [Concomitant]

REACTIONS (4)
  - DRUG EXPOSURE DURING PREGNANCY [None]
  - HYPEREMESIS GRAVIDARUM [None]
  - LIVE BIRTH [None]
  - NAUSEA [None]
